FAERS Safety Report 7554448-7 (Version None)
Quarter: 2011Q2

REPORT INFORMATION
  Report Type: 
  Country: None (occurrence: None)
  Receive Date: 20110617
  Receipt Date: 20110607
  Transmission Date: 20111010
  Serious: Yes (Hospitalization)
  Sender: FDA-Public Use
  Company Number: A0912924A

PATIENT
  Age: 58 Year
  Sex: Female
  Weight: 79.1 kg

DRUGS (8)
  1. ATIVAN [Concomitant]
     Indication: ANXIETY
     Dosage: .5MG SIX TIMES PER DAY
     Route: 048
     Dates: start: 20110105
  2. CARBOPLATIN [Suspect]
     Indication: BREAST CANCER
     Route: 042
     Dates: start: 20101230
  3. TRASTUZUMAB [Suspect]
     Indication: BREAST CANCER
     Route: 042
     Dates: start: 20101230
  4. LEVAQUIN [Concomitant]
     Indication: PROPHYLAXIS
     Dosage: 500MG PER DAY
     Route: 048
     Dates: start: 20101221
  5. LAPATINIB [Suspect]
     Indication: BREAST CANCER
     Dosage: 750MG PER DAY
     Route: 048
     Dates: start: 20101230
  6. DOCETAXEL [Suspect]
     Indication: BREAST CANCER
     Dosage: 75MGM2 EVERY 3 WEEKS
     Route: 042
     Dates: start: 20101230
  7. NEUPOGEN [Concomitant]
  8. LOMOTIL [Concomitant]
     Route: 048
     Dates: start: 20110113

REACTIONS (2)
  - DIARRHOEA [None]
  - DEHYDRATION [None]
